FAERS Safety Report 5614192-X (Version None)
Quarter: 2008Q1

REPORT INFORMATION
  Report Type: 
  Country: None (occurrence: None)
  Receive Date: 20080130
  Receipt Date: 20080124
  Transmission Date: 20080703
  Serious: Yes (Hospitalization, Disabling)
  Sender: FDA-Public Use
  Company Number: 144-C5013-08010404

PATIENT
  Age: 76 Year
  Sex: Male
  Weight: 75 kg

DRUGS (3)
  1. CC-5013 (LENALIDOMIDE) (CAPSULES) [Suspect]
     Indication: MULTIPLE MYELOMA
     Dosage: 25 MG, DAILY, ORAL
     Route: 048
     Dates: start: 20071123, end: 20080103
  2. DEXAMETHASONE TAB [Concomitant]
  3. FRAXIPARIN (HEPARIN-FRACTION, CALCIUM SALT) [Concomitant]

REACTIONS (2)
  - ISCHAEMIC STROKE [None]
  - THALAMIC INFARCTION [None]
